FAERS Safety Report 12665172 (Version 1)
Quarter: 2016Q3

REPORT INFORMATION
  Report Type: Report from Study
  Country: CA (occurrence: CA)
  Receive Date: 20160818
  Receipt Date: 20160818
  Transmission Date: 20161109
  Serious: Yes (Hospitalization)
  Sender: FDA-Public Use
  Company Number: PHHY2016CA110956

PATIENT
  Age: 31 Year
  Sex: Female

DRUGS (1)
  1. COSENTYX [Suspect]
     Active Substance: SECUKINUMAB
     Indication: PSORIATIC ARTHROPATHY
     Dosage: 150 MG, QW
     Route: 058
     Dates: start: 20160713, end: 20160803

REACTIONS (10)
  - Chills [Unknown]
  - Viral infection [Unknown]
  - Rash [Unknown]
  - Diarrhoea [Unknown]
  - General physical health deterioration [Unknown]
  - Urticaria [Unknown]
  - Abdominal pain upper [Unknown]
  - Pruritus [Recovering/Resolving]
  - Body temperature increased [Unknown]
  - Erythema [Unknown]

NARRATIVE: CASE EVENT DATE: 20160805
